FAERS Safety Report 6324447-1 (Version None)
Quarter: 2009Q3

REPORT INFORMATION
  Report Type: 
  Country: None (occurrence: None)
  Receive Date: 20090824
  Receipt Date: 20090511
  Transmission Date: 20100115
  Serious: No
  Sender: FDA-Public Use
  Company Number: US-ABBOTT-09P-163-0573083-00

PATIENT
  Sex: Female
  Weight: 108.96 kg

DRUGS (4)
  1. NIASPAN [Suspect]
     Indication: BLOOD TRIGLYCERIDES INCREASED
     Route: 048
     Dates: start: 20090304, end: 20090401
  2. NIASPAN [Suspect]
     Indication: HIGH DENSITY LIPOPROTEIN DECREASED
     Route: 048
     Dates: start: 20090401, end: 20090501
  3. NIASPAN [Suspect]
     Route: 048
     Dates: start: 20090501, end: 20090510
  4. ZOLOFT [Concomitant]
     Indication: DEPRESSION
     Route: 048

REACTIONS (5)
  - GENERALISED ERYTHEMA [None]
  - MIDDLE INSOMNIA [None]
  - PALPITATIONS [None]
  - PARAESTHESIA [None]
  - SKIN BURNING SENSATION [None]
